FAERS Safety Report 4994030-9 (Version None)
Quarter: 2006Q2

REPORT INFORMATION
  Report Type: 
  Country: None (occurrence: None)
  Receive Date: 20060505
  Receipt Date: 20060412
  Transmission Date: 20061013
  Serious: Yes (Hospitalization, Disabling, Other)
  Sender: FDA-Public Use
  Company Number: PHEH2006US04831

PATIENT
  Age: 70 Year
  Sex: Male
  Weight: 87.981 kg

DRUGS (2)
  1. ZOMETA [Suspect]
     Indication: PROSTATE CANCER METASTATIC
     Dosage: 4 MG, MONTHLY
     Dates: start: 20060330, end: 20060330
  2. TAXOTERE [Concomitant]
     Indication: PROSTATE CANCER METASTATIC
     Dosage: 144 MG, ONCE/SINGLE
     Route: 042
     Dates: start: 20060330, end: 20060330

REACTIONS (4)
  - CELLULITIS [None]
  - EXTRAVASATION [None]
  - INFECTION [None]
  - INFUSION SITE REACTION [None]
